FAERS Safety Report 9538006 (Version 3)
Quarter: 2014Q1

REPORT INFORMATION
  Report Type: Report from Study
  Country: US (occurrence: US)
  Receive Date: 20130919
  Receipt Date: 20140214
  Transmission Date: 20141002
  Serious: Yes (Death)
  Sender: FDA-Public Use
  Company Number: US-ROCHE-1278543

PATIENT
  Sex: Male
  Weight: 63.56 kg

DRUGS (4)
  1. AVASTIN [Suspect]
     Indication: NEOPLASM MALIGNANT
     Route: 065
     Dates: start: 20120614, end: 20120828
  2. AVASTIN [Suspect]
     Indication: LUNG NEOPLASM MALIGNANT
     Route: 042
     Dates: start: 20120614, end: 20120828
  3. ALIMTA [Concomitant]
     Indication: LUNG NEOPLASM MALIGNANT
     Route: 042
  4. CISPLATIN [Concomitant]
     Indication: LUNG NEOPLASM MALIGNANT
     Dosage: DAY 1. 08, 28
     Route: 042

REACTIONS (2)
  - Atrial fibrillation [Fatal]
  - Pneumothorax [Fatal]
